FAERS Safety Report 9684683 (Version 1)
Quarter: 2013Q4

REPORT INFORMATION
  Report Type: Spontaneous
  Country: US (occurrence: None)
  Receive Date: 20131108
  Receipt Date: 20131108
  Transmission Date: 20140711
  Serious: Yes (Other)
  Sender: FDA-Public Use
  Company Number: ACO_39297_2013

PATIENT
  Sex: Female

DRUGS (10)
  1. AMPYRA [Suspect]
     Indication: MULTIPLE SCLEROSIS
     Route: 048
     Dates: start: 20130410
  2. FISH OIL (FISH OIL) [Concomitant]
  3. AUBAGIO (TERIFLUNOMIDE) [Concomitant]
  4. MULTIVITAMIN (VITAMINS NOS) [Concomitant]
  5. EVISTA (RALOXIFENE HYDROCHLORIDE) [Concomitant]
  6. CRESTOR (ROSUVASTATIN CALCIUM) [Concomitant]
  7. PROPRANOLOL (PROPRANOLOL HYDROCHLORIDE) [Concomitant]
  8. VESICARE (SOLIFENACIN SUCCINATE) [Concomitant]
  9. BACLOFEN (BACLOFEN) [Concomitant]
  10. OXYBUTYNIN (OXYBUTYNIN HYDROCHLORIDE) [Concomitant]

REACTIONS (1)
  - White blood cell count decreased [None]
